FAERS Safety Report 7000961-0 (Version None)
Quarter: 2010Q3

REPORT INFORMATION
  Report Type: 
  Country: None (occurrence: None)
  Receive Date: 20100920
  Receipt Date: 20100330
  Transmission Date: 20110219
  Serious: Yes (Other)
  Sender: FDA-Public Use
  Company Number: US-ASTRAZENECA-2006UW04739

PATIENT
  Age: 16790 Day
  Sex: Female

DRUGS (6)
  1. SEROQUEL [Suspect]
     Indication: HALLUCINATION
     Dosage: 200 MG TO 400 MG
     Route: 048
     Dates: start: 20030201, end: 20050501
  2. SEROQUEL [Suspect]
     Indication: BIPOLAR DISORDER
     Dosage: 200 MG TO 400 MG
     Route: 048
     Dates: start: 20030201, end: 20050501
  3. RISPERDAL [Suspect]
     Indication: HALLUCINATION
  4. RISPERDAL [Suspect]
     Indication: BIPOLAR DISORDER
  5. PAXIL [Concomitant]
  6. TRAZODONE HCL [Concomitant]
     Dosage: 150-200 MG

REACTIONS (3)
  - PANCREATITIS [None]
  - TYPE 2 DIABETES MELLITUS [None]
  - WEIGHT INCREASED [None]
